FAERS Safety Report 10623690 (Version 1)
Quarter: 2014Q4

REPORT INFORMATION
  Report Type: Spontaneous
  Country: CH (occurrence: CH)
  Receive Date: 20141203
  Receipt Date: 20141203
  Transmission Date: 20150529
  Serious: Yes (Life-Threatening, Hospitalization, Other)
  Sender: FDA-Public Use
  Company Number: CH-ASTRAZENECA-2014SE90908

PATIENT
  Age: 12704 Day
  Sex: Female

DRUGS (4)
  1. SEROQUEL XR [Suspect]
     Active Substance: QUETIAPINE FUMARATE
     Dosage: 10 TABLETS
     Route: 048
     Dates: start: 20140107, end: 20140107
  2. SEROQUEL XR [Suspect]
     Active Substance: QUETIAPINE FUMARATE
     Dosage: 10 TABLETS
     Route: 048
     Dates: start: 20140107, end: 20140107
  3. ZYPREXA [Suspect]
     Active Substance: OLANZAPINE
     Dosage: 10 TABLETS
     Route: 048
     Dates: start: 20140107, end: 20140107
  4. ULCOGANT [Suspect]
     Active Substance: SUCRALFATE
     Dosage: 10 TABLETS
     Route: 048
     Dates: start: 20140107, end: 20140107

REACTIONS (4)
  - Suicide attempt [Unknown]
  - Somnolence [Unknown]
  - Haemorrhage [Unknown]
  - Exposure during pregnancy [Recovered/Resolved]

NARRATIVE: CASE EVENT DATE: 20140107
